FAERS Safety Report 5523577-1 (Version None)
Quarter: 2007Q4

REPORT INFORMATION
  Report Type: 
  Country: None (occurrence: None)
  Receive Date: 20071121
  Receipt Date: 20071109
  Transmission Date: 20080405
  Serious: Yes (Hospitalization)
  Sender: FDA-Public Use
  Company Number: FR-ROCHE-531256

PATIENT
  Age: 83 Year
  Sex: Female

DRUGS (5)
  1. VALIUM [Suspect]
     Indication: ANXIETY
     Route: 048
     Dates: end: 20070530
  2. DIFFU K [Suspect]
     Route: 048
     Dates: start: 20070525, end: 20070601
  3. HALDOL FAIBLE [Suspect]
     Indication: ANXIETY
     Route: 048
     Dates: start: 20070524, end: 20070528
  4. HYPERIUM [Suspect]
     Indication: HYPERTENSION
     Route: 048
     Dates: end: 20070526
  5. ALDACTONE [Suspect]
     Indication: HYPERTENSION
     Dosage: DOSAGE 1.5 DOSES Q
     Route: 048
     Dates: end: 20070530

REACTIONS (2)
  - FALL [None]
  - ORTHOSTATIC HYPOTENSION [None]
